FAERS Safety Report 8784940 (Version 1)
Quarter: 2012Q4

REPORT INFORMATION
  Report Type: 
  Country: US (occurrence: US)
  Receive Date: 20120914
  Receipt Date: 20120914
  Transmission Date: 20130627
  Serious: No
  Sender: FDA-Public Use
  Company Number: US-BAYER-2012-095566

PATIENT
  Age: 55 Year
  Sex: Female

DRUGS (3)
  1. BETASERON [Suspect]
     Indication: MULTIPLE SCLEROSIS
     Dosage: .3 mg, QOD
     Route: 058
     Dates: start: 201203
  2. SERTRALINE [Concomitant]
     Indication: DEPRESSION
     Dosage: 75 mg, UNK
  3. LOSARTAN [Concomitant]
     Dosage: UNK
     Dates: start: 201208

REACTIONS (1)
  - Depression [None]
